FAERS Safety Report 11214457 (Version 1)
Quarter: 2015Q2

REPORT INFORMATION
  Report Type: Spontaneous
  Country: IT (occurrence: IT)
  Receive Date: 20150624
  Receipt Date: 20150624
  Transmission Date: 20150821
  Serious: Yes (Hospitalization)
  Sender: FDA-Public Use
  Company Number: IT-TEVA-571081ACC

PATIENT
  Age: 58 Year
  Sex: Male

DRUGS (3)
  1. IBUPROFEN. [Suspect]
     Active Substance: IBUPROFEN
     Indication: INFLAMMATION
     Dosage: 2 GRAM DAILY; 2 G DAILY
     Route: 048
     Dates: start: 20141112, end: 20141115
  2. CIPROXIN - 500 MG COMPRESSE RIVESTITE - BAYER S.P.A. [Suspect]
     Active Substance: CIPROFLOXACIN
     Indication: PROSTATITIS
     Dosage: 500 MILLIGRAM DAILY; 500 MG DAILY
     Route: 048
     Dates: start: 20141101, end: 20141105
  3. NORFLOXACIN [Suspect]
     Active Substance: NORFLOXACIN
     Indication: PROSTATITIS
     Dosage: 400 MILLIGRAM DAILY; 400 MG DAILY
     Route: 048
     Dates: start: 20141105, end: 20141108

REACTIONS (4)
  - Tubulointerstitial nephritis [Unknown]
  - Abdominal pain [Unknown]
  - Acute kidney injury [Unknown]
  - Retching [Unknown]

NARRATIVE: CASE EVENT DATE: 20141115
